FAERS Safety Report 19940513 (Version 1)
Quarter: 2021Q4

REPORT INFORMATION
  Report Type: Spontaneous
  Country: US (occurrence: US)
  Receive Date: 20211011
  Receipt Date: 20211011
  Transmission Date: 20220303
  Serious: No
  Sender: FDA-Public Use
  Company Number: US-PERRIGO-20US013271

PATIENT
  Sex: Female

DRUGS (3)
  1. IMIQUIMOD [Suspect]
     Active Substance: IMIQUIMOD
     Indication: Basal cell carcinoma
     Dosage: UNKNOWN, QD
     Route: 061
     Dates: start: 20200707, end: 20200727
  2. IMIQUIMOD [Suspect]
     Active Substance: IMIQUIMOD
     Dosage: UNKNOWN, BID
     Route: 061
     Dates: start: 20200728, end: 20200817
  3. IMIQUIMOD [Suspect]
     Active Substance: IMIQUIMOD
     Dosage: UNKNOWN, TID
     Route: 061
     Dates: start: 20200818

REACTIONS (4)
  - Drug ineffective [Unknown]
  - Overdose [Not Recovered/Not Resolved]
  - Incorrect product administration duration [Not Recovered/Not Resolved]
  - Wrong technique in product usage process [Unknown]

NARRATIVE: CASE EVENT DATE: 20200707
